FAERS Safety Report 9814897 (Version 1)
Quarter: 2014Q1

REPORT INFORMATION
  Report Type: Spontaneous
  Country: LB (occurrence: LB)
  Receive Date: 20140113
  Receipt Date: 20140113
  Transmission Date: 20141002
  Serious: Yes (Life-Threatening, Hospitalization, Other)
  Sender: FDA-Public Use
  Company Number: LB-GLAXOSMITHKLINE-B0959579A

PATIENT
  Sex: Female

DRUGS (2)
  1. ZINNAT [Suspect]
     Indication: BRONCHITIS
     Dosage: 500MG TWICE PER DAY
     Route: 065
     Dates: start: 2013, end: 2013
  2. FLUIBRON [Concomitant]
     Indication: BRONCHITIS
     Route: 065

REACTIONS (1)
  - Anaphylactic shock [Recovered/Resolved]
